FAERS Safety Report 7910377-8 (Version None)
Quarter: 2011Q4

REPORT INFORMATION
  Report Type: 
  Country: None (occurrence: None)
  Receive Date: 20111111
  Receipt Date: 20111108
  Transmission Date: 20120403
  Serious: Yes (Other)
  Sender: FDA-Public Use
  Company Number: DE-ABBOTT-11P-062-0863627-00

PATIENT
  Sex: Female
  Weight: 74 kg

DRUGS (2)
  1. KIVEXA [Concomitant]
     Indication: HIV INFECTION
     Dosage: 600/900MG ONCE DAILY
     Route: 048
     Dates: start: 20100818
  2. KALETRA [Suspect]
     Indication: HIV INFECTION
     Dosage: 800/200MG ONCE DAILY
     Route: 048
     Dates: start: 20100121

REACTIONS (1)
  - PSYCHOTIC DISORDER [None]
